FAERS Safety Report 7829468-5 (Version None)
Quarter: 2011Q4

REPORT INFORMATION
  Report Type: 
  Country: None (occurrence: None)
  Receive Date: 20111020
  Receipt Date: 20111006
  Transmission Date: 20120403
  Serious: Yes (Other)
  Sender: FDA-Public Use
  Company Number: US-ROCHE-1003079

PATIENT
  Sex: Female

DRUGS (4)
  1. HERCEPTIN [Suspect]
     Indication: BREAST CANCER METASTATIC
     Route: 065
     Dates: start: 20110201
  2. COUMADIN [Concomitant]
  3. TAXOL [Suspect]
     Indication: BREAST CANCER METASTATIC
  4. LORTAB [Concomitant]

REACTIONS (1)
  - AORTIC ANEURYSM [None]
